FAERS Safety Report 9024924 (Version 2)
Quarter: 2013Q1

REPORT INFORMATION
  Report Type: Report from Study
  Country: US (occurrence: US)
  Receive Date: 20130121
  Receipt Date: 20130319
  Transmission Date: 20140127
  Serious: Yes (Hospitalization, Other)
  Sender: FDA-Public Use
  Company Number: US-MERCK-1001USA00361

PATIENT
  Age: 18 None
  Sex: Female
  Weight: 56.7 kg

DRUGS (16)
  1. RALTEGRAVIR POTASSIUM [Suspect]
     Indication: HIV INFECTION
     Dosage: 400 MG, BID
     Route: 048
     Dates: start: 20090107
  2. RALTEGRAVIR POTASSIUM [Suspect]
     Dosage: 400 MG, BID
     Route: 048
     Dates: start: 20101113, end: 20110504
  3. RALTEGRAVIR POTASSIUM [Suspect]
     Dosage: 400 MG, BID
     Route: 048
     Dates: start: 20110702, end: 20110707
  4. DARUNAVIR [Concomitant]
     Indication: HIV INFECTION
     Dosage: 600 MG, BID
     Route: 048
  5. DARUNAVIR [Concomitant]
     Dosage: UNK UNK, BID
     Route: 048
     Dates: end: 20110504
  6. RITONAVIR [Concomitant]
     Indication: HIV INFECTION
     Dosage: 100 MG, BID
     Route: 048
  7. RITONAVIR [Concomitant]
     Dosage: UNK UNK, BID
     Route: 048
     Dates: end: 20110504
  8. ETRAVIRINE [Concomitant]
     Dosage: 200 MG, BID
     Route: 048
  9. BACTRIM DS [Concomitant]
     Dosage: ON MONDAY, TUESDAY AND WEDNESDAY
     Route: 048
  10. MELATONIN [Concomitant]
     Indication: SLEEP DISORDER
     Route: 048
  11. LEXAPRO [Suspect]
     Indication: DEPRESSION
     Dosage: 5 MG, QD
     Route: 048
     Dates: start: 20110509, end: 20110522
  12. LEXAPRO [Suspect]
     Dosage: 10 MG, QD
     Route: 048
  13. EPZICOM [Suspect]
     Indication: HIV INFECTION
     Dosage: 600/300
     Route: 048
     Dates: start: 20110702, end: 20110706
  14. EPZICOM [Suspect]
     Dosage: 600/300
     Route: 048
     Dates: end: 20110504
  15. DEPO-PROVERA [Concomitant]
     Indication: CONTRACEPTION
     Dosage: UNK UNK, QM3
     Route: 030
     Dates: end: 20110503
  16. ZOLOFT [Concomitant]
     Indication: DEPRESSION
     Dosage: UNK UNK, QD
     Route: 048
     Dates: end: 20110706

REACTIONS (6)
  - Suicidal behaviour [Recovering/Resolving]
  - Abdominal pain [Recovered/Resolved]
  - Depression [Recovered/Resolved]
  - Abdominal pain [Recovered/Resolved]
  - Suicidal ideation [Recovered/Resolved]
  - Gastritis [Recovering/Resolving]
